FAERS Safety Report 9869968 (Version 1)
Quarter: 2014Q1

REPORT INFORMATION
  Report Type: Spontaneous
  Country: DE (occurrence: None)
  Receive Date: 20140131
  Receipt Date: 20140131
  Transmission Date: 20141002
  Serious: Yes (Other)
  Sender: FDA-Public Use
  Company Number: DK-SEPTODONT-201401692

PATIENT
  Age: 32 Year
  Sex: Female

DRUGS (1)
  1. SEPTANEST [Suspect]
     Route: 004
     Dates: start: 20120504

REACTIONS (13)
  - Injury [None]
  - Discomfort [None]
  - Pain in jaw [None]
  - Facial pain [None]
  - Headache [None]
  - Sensory loss [None]
  - Jaw disorder [None]
  - Temporomandibular joint syndrome [None]
  - Pain [None]
  - Ligament sprain [None]
  - Trigeminal nerve disorder [None]
  - Fluid retention [None]
  - Anaesthetic complication [None]
